FAERS Safety Report 6256578-9 (Version None)
Quarter: 2009Q3

REPORT INFORMATION
  Report Type: 
  Country: None (occurrence: None)
  Receive Date: 20090706
  Receipt Date: 20090626
  Transmission Date: 20100115
  Serious: No
  Sender: FDA-Public Use
  Company Number: US-BAYER-200922854NA

PATIENT
  Age: 16 Year
  Sex: Female

DRUGS (1)
  1. YAZ [Suspect]
     Indication: ACNE
     Route: 048
     Dates: start: 20090501, end: 20090601

REACTIONS (4)
  - CRYING [None]
  - DEPRESSION [None]
  - NO ADVERSE EVENT [None]
  - SOCIAL AVOIDANT BEHAVIOUR [None]
